FAERS Safety Report 8462475-0 (Version None)
Quarter: 2012Q2

REPORT INFORMATION
  Report Type: 
  Country: None (occurrence: None)
  Receive Date: 20120625
  Receipt Date: 20120615
  Transmission Date: 20120825
  Serious: Yes (Other)
  Sender: FDA-Public Use
  Company Number: US-ELI_LILLY_AND_COMPANY-US201206005752

PATIENT
  Age: 65 Year
  Sex: Male

DRUGS (1)
  1. HUMULIN R [Suspect]
     Dosage: UNK, UNKNOWN
     Dates: start: 20111201

REACTIONS (2)
  - HYPOGLYCAEMIA [None]
  - ROAD TRAFFIC ACCIDENT [None]
